FAERS Safety Report 4818229-7 (Version None)
Quarter: 2005Q3

REPORT INFORMATION
  Report Type: 
  Country: None (occurrence: None)
  Receive Date: 20050929
  Receipt Date: 20050711
  Transmission Date: 20060218
  Serious: No
  Sender: FDA-Public Use
  Company Number: 05P-163-0305510-00

PATIENT
  Age: 62 Year
  Sex: Male

DRUGS (11)
  1. HUMIRA [Suspect]
     Indication: SARCOIDOSIS
     Dosage: 40 MG, 1 IN 2 WK, SUBCUTANEOUS
     Route: 058
     Dates: start: 20030101
  2. PREDNISONE [Concomitant]
  3. ATORVASTATIN CALCIUM [Concomitant]
  4. SUMATRIPTAN SUCCINATE [Concomitant]
  5. OXYCOCET [Concomitant]
  6. GABAPENTIN [Concomitant]
  7. HYDROXYCHLOROQUINE PHOSPHATE [Concomitant]
  8. CELECOXIB [Concomitant]
  9. ALENDRONATE SODIUM [Concomitant]
  10. CALCIUM GLUCONATE [Concomitant]
  11. CYCLOBENZAPRINE HCL [Concomitant]

REACTIONS (1)
  - MUSCLE FATIGUE [None]
